FAERS Safety Report 23764772 (Version 1)
Quarter: 2024Q2

REPORT INFORMATION
  Report Type: Spontaneous
  Country: US (occurrence: US)
  Receive Date: 20240420
  Receipt Date: 20240420
  Transmission Date: 20240716
  Serious: Yes (Other)
  Sender: FDA-Public Use
  Company Number: US-JNJFOC-20240446970

PATIENT

DRUGS (1)
  1. NEUTROGENA SPORT FACE OIL FREE SUNSCREEN BROAD SPECTRUM SPF 70 PLUS (A [Suspect]
     Active Substance: AVOBENZONE\HOMOSALATE\OCTISALATE\OCTOCRYLENE
     Indication: Product used for unknown indication
     Route: 061

REACTIONS (1)
  - Chemical burns of eye [Unknown]
